FAERS Safety Report 13585682 (Version 3)
Quarter: 2018Q2

REPORT INFORMATION
  Report Type: Spontaneous
  Country: US (occurrence: US)
  Receive Date: 20170526
  Receipt Date: 20180521
  Transmission Date: 20180711
  Serious: No
  Sender: FDA-Public Use
  Company Number: US-BAUSCH-BL-2017-001331

PATIENT
  Sex: Female

DRUGS (2)
  1. CUPRIMINE [Suspect]
     Active Substance: PENICILLAMINE
     Indication: PRODUCT USED FOR UNKNOWN INDICATION
     Dosage: ONE CAPSULE
     Route: 048
  2. CUPRIMINE [Suspect]
     Active Substance: PENICILLAMINE
     Dosage: 3 CAPSULES DAILY
     Route: 048

REACTIONS (2)
  - Feeling abnormal [Unknown]
  - Influenza [Unknown]
